FAERS Safety Report 8780808 (Version 2)
Quarter: 2012Q4

REPORT INFORMATION
  Report Type: 
  Country: CH (occurrence: CH)
  Receive Date: 20120906
  Receipt Date: 20120917
  Transmission Date: 20130627
  Serious: Yes (Death)
  Sender: FDA-Public Use
  Company Number: CH-ELI_LILLY_AND_COMPANY-CH201209000979

PATIENT
  Age: 83 Year
  Sex: Female

DRUGS (1)
  1. FORSTEO [Suspect]
     Indication: OSTEOPOROSIS
     Dosage: 20 ug, UNK
     Route: 058
     Dates: start: 20110317

REACTIONS (1)
  - Death [Fatal]
